FAERS Safety Report 6864078-8 (Version None)
Quarter: 2010Q3

REPORT INFORMATION
  Report Type: 
  Country: None (occurrence: None)
  Receive Date: 20100721
  Receipt Date: 20080606
  Transmission Date: 20110219
  Serious: No
  Sender: FDA-Public Use
  Company Number: US-PFIZER INC-2008022992

PATIENT
  Sex: Female
  Weight: 81.818 kg

DRUGS (3)
  1. CHANTIX [Suspect]
     Indication: SMOKING CESSATION THERAPY
     Dates: start: 20070101, end: 20070701
  2. PLETAL [Concomitant]
  3. YEAST [Concomitant]

REACTIONS (2)
  - DRUG DOSE OMISSION [None]
  - NAUSEA [None]
